FAERS Safety Report 15095655 (Version 1)
Quarter: 2018Q3

REPORT INFORMATION
  Report Type: Other
  Country: JP (occurrence: JP)
  Receive Date: 20180702
  Receipt Date: 20180702
  Transmission Date: 20181010
  Serious: Yes (Hospitalization)
  Sender: FDA-Public Use
  Company Number: JP-AJANTA PHARMA USA INC.-2051155

PATIENT
  Age: 84 Year
  Sex: Female

DRUGS (2)
  1. CILOSTAZOL. [Suspect]
     Active Substance: CILOSTAZOL
     Route: 048
  2. DULOXETINE (ANDA 208706) [Suspect]
     Active Substance: DULOXETINE
     Indication: PAIN
     Route: 048

REACTIONS (2)
  - Long QT syndrome [Recovered/Resolved]
  - Ventricular fibrillation [Recovered/Resolved]
